FAERS Safety Report 8778182 (Version 1)
Quarter: 2012Q4

REPORT INFORMATION
  Report Type: 
  Country: US (occurrence: US)
  Receive Date: 20120912
  Receipt Date: 20120912
  Transmission Date: 20130627
  Serious: No
  Sender: FDA-Public Use
  Company Number: US-ASTRAZENECA-2012SE61227

PATIENT
  Age: 85 Year
  Sex: Male
  Weight: 70.3 kg

DRUGS (20)
  1. SYMBICORT [Suspect]
     Indication: ASTHMA
     Dosage: 160/4.5, 2 puffs BID
     Route: 055
     Dates: start: 20120821
  2. ASPIRIN [Concomitant]
     Route: 048
  3. CALCIUM CARBONATE [Concomitant]
     Route: 048
  4. VITAMIN D [Concomitant]
     Route: 048
  5. ANTIGEN DROPS [Concomitant]
     Indication: MULTIPLE ALLERGIES
     Dosage: daily
     Route: 050
  6. FEXOFENADINE [Concomitant]
  7. SYNALAR CREAM [Concomitant]
  8. OSTEO-BIFLEX [Concomitant]
     Dosage: BID
  9. LAMICTAL [Concomitant]
  10. ACIDALPHYLIS [Concomitant]
  11. LISINOPRIL/HCTZ [Concomitant]
     Dosage: 20/25 MG DAILY
  12. ASACOL [Concomitant]
  13. OMEPRAZOLE [Concomitant]
     Route: 048
  14. METAMUCIL [Concomitant]
  15. METAMUCIL [Concomitant]
  16. FLOMAX [Concomitant]
  17. ACCUTIVE LUTEIN [Concomitant]
  18. VITAMIN B COMPLEX [Concomitant]
  19. ZOLOFT [Concomitant]
  20. TYLENOL [Concomitant]

REACTIONS (3)
  - Dyspnoea [Unknown]
  - Vomiting [Unknown]
  - Nausea [Unknown]
